FAERS Safety Report 21765820 (Version 1)
Quarter: 2022Q4

REPORT INFORMATION
  Report Type: Spontaneous
  Country: US (occurrence: None)
  Receive Date: 20221221
  Receipt Date: 20221221
  Transmission Date: 20230113
  Serious: Yes (Other)
  Sender: FDA-Public Use
  Company Number: None

PATIENT
  Age: 0 Year
  Sex: Female

DRUGS (3)
  1. ACETAMINOPHEN [Suspect]
     Active Substance: ACETAMINOPHEN
     Indication: Migraine
     Dosage: OTHER QUANTITY : 1000-2000MG;?FREQUENCY : AS NEEDED;?
     Route: 048
     Dates: start: 202203
  2. ACETAMINOPHEN [Suspect]
     Active Substance: ACETAMINOPHEN
     Dosage: FREQUENCY : AS NEEDED;?
     Route: 048
  3. SUMATRIPTAN [Suspect]
     Active Substance: SUMATRIPTAN

REACTIONS (2)
  - Premature baby [None]
  - Maternal exposure during pregnancy [None]

NARRATIVE: CASE EVENT DATE: 20221025
